FAERS Safety Report 8301441 (Version 2)
Quarter: 2013Q2

REPORT INFORMATION
  Report Type: Spontaneous
  Country: US (occurrence: US)
  Receive Date: 20111219
  Receipt Date: 20130619
  Transmission Date: 20140414
  Serious: Yes (Other)
  Sender: FDA-Public Use
  Company Number: US-ASTRAZENECA-2011SE67669

PATIENT
  Age: 41 Year
  Sex: Female

DRUGS (3)
  1. SEROQUEL [Suspect]
     Route: 048
  2. TEGRETOL [Concomitant]
  3. TYLENOL PM [Concomitant]

REACTIONS (8)
  - Epilepsy [Unknown]
  - Convulsion [Unknown]
  - Bipolar disorder [Unknown]
  - Insomnia [Unknown]
  - Tongue injury [Unknown]
  - Pain [Unknown]
  - Poor quality sleep [Unknown]
  - Drug dose omission [Unknown]
